FAERS Safety Report 5495801-5 (Version None)
Quarter: 2007Q4

REPORT INFORMATION
  Report Type: 
  Country: None (occurrence: None)
  Receive Date: 20071025
  Receipt Date: 20061024
  Transmission Date: 20080405
  Serious: No
  Sender: FDA-Public Use
  Company Number: A0624746A

PATIENT
  Age: 59 Year
  Sex: Female

DRUGS (4)
  1. ADVAIR DISKUS 100/50 [Suspect]
     Route: 055
     Dates: start: 20061023
  2. EVISTA [Concomitant]
  3. SYNTHROID [Concomitant]
  4. ZITHROMAX [Concomitant]

REACTIONS (2)
  - MICTURITION URGENCY [None]
  - OFF LABEL USE [None]
